FAERS Safety Report 7455829-2 (Version None)
Quarter: 2011Q2

REPORT INFORMATION
  Report Type: 
  Country: None (occurrence: None)
  Receive Date: 20110503
  Receipt Date: 20110429
  Transmission Date: 20111010
  Serious: Yes (Death, Hospitalization, Other)
  Sender: FDA-Public Use
  Company Number: PHHY2011BR36776

PATIENT
  Sex: Male

DRUGS (1)
  1. EXELON [Suspect]
     Indication: MEMORY IMPAIRMENT
     Dosage: UNK
     Route: 048
     Dates: start: 20060719

REACTIONS (5)
  - CARDIAC ARREST [None]
  - DEATH [None]
  - RENAL DISORDER [None]
  - PNEUMONIA [None]
  - UNRESPONSIVE TO STIMULI [None]
